FAERS Safety Report 4552116-7 (Version None)
Quarter: 2005Q1

REPORT INFORMATION
  Report Type: 
  Country: None (occurrence: None)
  Receive Date: 20050112
  Receipt Date: 20041129
  Transmission Date: 20050727
  Serious: Yes (Other)
  Sender: FDA-Public Use
  Company Number: US-SHR-03-010901

PATIENT
  Age: 55 Year
  Sex: Female
  Weight: 104.3 kg

DRUGS (8)
  1. BETASERON [Suspect]
     Indication: MULTIPLE SCLEROSIS
     Dosage: 8 MIU, 3X/WEEK, SUBCUTANOUES
     Route: 058
     Dates: start: 20021001, end: 20030401
  2. BACLOFEN [Concomitant]
  3. GABAPENTIN (GABEPENTIN) [Concomitant]
  4. FLUOXETINE [Concomitant]
  5. LEVOTHYROXINE SODIUM [Concomitant]
  6. AMITRIPTYLINE (AMITRIPTYLINE) [Concomitant]
  7. RETINOL [Concomitant]
  8. NEXIUM [Concomitant]

REACTIONS (20)
  - ACUTE SINUSITIS [None]
  - ANTINUCLEAR ANTIBODY POSITIVE [None]
  - CHEST PAIN [None]
  - DISEASE RECURRENCE [None]
  - DYSPNOEA [None]
  - GENERALISED OEDEMA [None]
  - INFLAMMATION [None]
  - METABOLIC ALKALOSIS [None]
  - NEUROMYOPATHY [None]
  - PERICARDIAL EFFUSION [None]
  - PLEURAL EFFUSION [None]
  - PLEUROPERICARDITIS [None]
  - PRODUCTIVE COUGH [None]
  - PYREXIA [None]
  - RED BLOOD CELL SEDIMENTATION RATE INCREASED [None]
  - RESTRICTIVE PULMONARY DISEASE [None]
  - SLEEP APNOEA SYNDROME [None]
  - SPUTUM DISCOLOURED [None]
  - TOTAL LUNG CAPACITY DECREASED [None]
  - WHITE BLOOD CELL COUNT INCREASED [None]
